FAERS Safety Report 4780673-4 (Version None)
Quarter: 2005Q3

REPORT INFORMATION
  Report Type: 
  Country: None (occurrence: None)
  Receive Date: 20050927
  Receipt Date: 20050920
  Transmission Date: 20060218
  Serious: Yes (Other)
  Sender: FDA-Public Use
  Company Number: ES-MERCK-0509ESP00027

PATIENT

DRUGS (1)
  1. TRUSOPT [Suspect]
     Route: 047

REACTIONS (1)
  - HERPES OPHTHALMIC [None]
